FAERS Safety Report 5052469-X (Version None)
Quarter: 2006Q3

REPORT INFORMATION
  Report Type: 
  Country: None (occurrence: None)
  Receive Date: 20060717
  Receipt Date: 20060705
  Transmission Date: 20061208
  Serious: Yes (Death, Other)
  Sender: FDA-Public Use
  Company Number: PHBS2006SE09922

PATIENT
  Sex: Female

DRUGS (4)
  1. ZOMETA [Suspect]
     Indication: METASTASES TO BONE
     Dosage: 4 MG, UNK
     Route: 042
     Dates: start: 20050101, end: 20060201
  2. DOLCONTIN [Concomitant]
     Route: 065
  3. CHOP [Concomitant]
     Dosage: UNK, UNK
     Route: 065
     Dates: end: 20060101
  4. RADIOTHERAPY [Concomitant]
     Route: 065

REACTIONS (7)
  - ABSCESS [None]
  - BONE DISORDER [None]
  - FISTULA [None]
  - MALIGNANT NEOPLASM PROGRESSION [None]
  - OSTEONECROSIS [None]
  - TOOTH DISORDER [None]
  - TOOTH EXTRACTION [None]
